FAERS Safety Report 5470167-5 (Version None)
Quarter: 2007Q3

REPORT INFORMATION
  Report Type: 
  Country: None (occurrence: None)
  Receive Date: 20070924
  Receipt Date: 20070911
  Transmission Date: 20080115
  Serious: Yes (Other)
  Sender: FDA-Public Use
  Company Number: GXKR2007US07906

PATIENT
  Age: 19 Year
  Sex: Female

DRUGS (10)
  1. PREDNISONE [Suspect]
     Indication: IMMUNOSUPPRESSION
     Dosage: 15 MG, QD,
  2. MYCOPHENOLATE MOFETIL [Suspect]
     Indication: IMMUNOSUPPRESSION
     Dosage: 500 MG, BID,
  3. CICLSPORIN             (NGX)(CICLOSPORIN) [Suspect]
     Indication: IMMUNOSUPPRESSION
     Dosage: 200 MG, BID,
  4. VALGANCICLOVIR HCL [Concomitant]
  5. SULFAMETHOXAZOLE AND TRIMETHOPRIM [Concomitant]
  6. PRAVASTATIN [Concomitant]
  7. CLOTRIMAZOLE [Concomitant]
  8. OMEPRAZOLE [Concomitant]
  9. LISINOPRIL [Concomitant]
  10. DARBEPOETIN ALFA (DARBEPOETIN ALFA) [Concomitant]

REACTIONS (8)
  - BLOOD PHOSPHORUS INCREASED [None]
  - IMMUNE SYSTEM DISORDER [None]
  - IMMUNOSUPPRESSION [None]
  - INFECTION [None]
  - NEPHROGENIC SYSTEMIC FIBROSIS [None]
  - RASH MACULAR [None]
  - RASH PRURITIC [None]
  - SERUM FERRITIN INCREASED [None]
